FAERS Safety Report 19104525 (Version 3)
Quarter: 2021Q2

REPORT INFORMATION
  Report Type: Spontaneous
  Country: US (occurrence: US)
  Receive Date: 20210407
  Receipt Date: 20210517
  Transmission Date: 20210717
  Serious: Yes (Hospitalization, Other)
  Sender: FDA-Public Use
  Company Number: US-INTRA-CELLULAR THERAPIES, INC.-2021ICT00170

PATIENT
  Age: 64 Year
  Sex: Male
  Weight: 90.7 kg

DRUGS (8)
  1. MEDICAL MARIJUANA [Concomitant]
     Active Substance: CANNABIS SATIVA SUBSP. INDICA TOP
     Dosage: UNK, DAILY
  2. LAMICTAL [Concomitant]
     Active Substance: LAMOTRIGINE
  3. CAPLYTA [Suspect]
     Active Substance: LUMATEPERONE
     Indication: MAJOR DEPRESSION
     Dosage: 42 MG, EVERY 48 HOURS
     Route: 048
     Dates: start: 202103, end: 20210325
  4. FANAPT [Concomitant]
     Active Substance: ILOPERIDONE
  5. ATORVASTATIN [Concomitant]
     Active Substance: ATORVASTATIN
  6. CAPLYTA [Suspect]
     Active Substance: LUMATEPERONE
     Indication: BIPOLAR DISORDER
     Dosage: 42 MG, 1X/DAY
     Dates: start: 20210320, end: 202103
  7. SEROQUEL [Concomitant]
     Active Substance: QUETIAPINE FUMARATE
  8. VYVANSE [Concomitant]
     Active Substance: LISDEXAMFETAMINE DIMESYLATE

REACTIONS (7)
  - Cardiac arrest [Unknown]
  - Eye movement disorder [Not Recovered/Not Resolved]
  - Fall [Recovered/Resolved]
  - Syncope [Unknown]
  - Bipolar disorder [Recovered/Resolved]
  - Major depression [Recovered/Resolved]
  - Drug ineffective for unapproved indication [Recovered/Resolved]

NARRATIVE: CASE EVENT DATE: 202103
